FAERS Safety Report 6890263-5 (Version None)
Quarter: 2010Q3

REPORT INFORMATION
  Report Type: 
  Country: None (occurrence: None)
  Receive Date: 20100730
  Receipt Date: 20080911
  Transmission Date: 20110219
  Serious: No
  Sender: FDA-Public Use
  Company Number: US-PFIZER INC-2004029251

PATIENT
  Sex: Female
  Weight: 61.23 kg

DRUGS (4)
  1. LIPITOR [Suspect]
     Indication: BLOOD CHOLESTEROL INCREASED
     Dosage: DAILY
     Route: 048
     Dates: start: 20030101, end: 20040401
  2. CYTOMEL [Concomitant]
     Route: 048
  3. PREMARIN [Concomitant]
     Route: 048
  4. FOSAMAX [Concomitant]
     Route: 048

REACTIONS (5)
  - ARTHRITIS [None]
  - FEELING ABNORMAL [None]
  - INSOMNIA [None]
  - MYALGIA [None]
  - PAIN IN EXTREMITY [None]
